FAERS Safety Report 8960125 (Version 1)
Quarter: 2012Q4

REPORT INFORMATION
  Report Type: 
  Country: US (occurrence: US)
  Receive Date: 20121212
  Receipt Date: 20121212
  Transmission Date: 20130627
  Serious: No
  Sender: FDA-Public Use
  Company Number: US-MYLANLABS-2012S1019505

PATIENT
  Age: 75 Year
  Sex: Female

DRUGS (6)
  1. CLOPIDOGREL TABLETS USP [Suspect]
     Indication: CEREBROVASCULAR ACCIDENT
     Route: 048
     Dates: start: 201204
  2. CLOPIDOGREL TABLETS USP [Suspect]
     Indication: ANTIPLATELET THERAPY
     Route: 048
     Dates: start: 201204
  3. LASIX [Concomitant]
     Indication: FLUID RETENTION
  4. POTASSIUM [Concomitant]
     Indication: ELECTROLYTE SUBSTITUTION THERAPY
  5. NORVASC [Concomitant]
     Indication: BLOOD PRESSURE INCREASED
  6. FLEXERIL [Concomitant]
     Indication: MYALGIA

REACTIONS (2)
  - Blister [Not Recovered/Not Resolved]
  - Eczema [Not Recovered/Not Resolved]
